FAERS Safety Report 8218299-2 (Version None)
Quarter: 2012Q1

REPORT INFORMATION
  Report Type: 
  Country: None (occurrence: None)
  Receive Date: 20120319
  Receipt Date: 20120309
  Transmission Date: 20120608
  Serious: Yes (Hospitalization)
  Sender: FDA-Public Use
  Company Number: JP-ASTELLAS-2012JP000936

PATIENT
  Sex: Female
  Weight: 52.6 kg

DRUGS (7)
  1. LOXONIN [Concomitant]
     Dosage: 60 MG, PRN
     Route: 048
     Dates: start: 20111027
  2. PERSANTIN [Suspect]
     Indication: SYSTEMIC LUPUS ERYTHEMATOSUS
     Dosage: 100 MG, BID
     Route: 048
     Dates: start: 20111013, end: 20120127
  3. BACTRIM [Concomitant]
     Dosage: 4 G, WEEKLY
     Route: 048
     Dates: start: 20110503, end: 20120301
  4. PREDNISOLONE [Concomitant]
     Indication: SYSTEMIC LUPUS ERYTHEMATOSUS
     Dosage: 4.5 MG, BID
     Route: 048
     Dates: start: 20120105
  5. PROGRAF [Suspect]
     Indication: SYSTEMIC LUPUS ERYTHEMATOSUS
     Dosage: 3 MG, UID/QD
     Route: 048
     Dates: start: 20111027, end: 20120129
  6. LIVALO [Concomitant]
     Dosage: 1 MG, UID/QD
     Route: 048
     Dates: start: 20110425
  7. OMEPRAZOLE [Concomitant]
     Dosage: 20 MG, UID/QD
     Route: 048
     Dates: start: 20110421

REACTIONS (1)
  - MENORRHAGIA [None]
